FAERS Safety Report 6963683-8 (Version None)
Quarter: 2010Q3

REPORT INFORMATION
  Report Type: 
  Country: None (occurrence: None)
  Receive Date: 20100830
  Receipt Date: 20100814
  Transmission Date: 20110219
  Serious: No
  Sender: FDA-Public Use
  Company Number: THQ2010A02269

PATIENT
  Sex: Female

DRUGS (1)
  1. PIOGLITAZONE HCL [Suspect]
     Indication: TYPE 2 DIABETES MELLITUS

REACTIONS (1)
  - PERICARDIAL EFFUSION [None]
